FAERS Safety Report 6148768-0 (Version None)
Quarter: 2009Q2

REPORT INFORMATION
  Report Type: 
  Country: None (occurrence: None)
  Receive Date: 20090406
  Receipt Date: 20090324
  Transmission Date: 20091009
  Serious: Yes (Hospitalization)
  Sender: FDA-Public Use
  Company Number: SPV1-2009-00497

PATIENT
  Age: 70 Year
  Sex: Male

DRUGS (1)
  1. FOSRENOL [Suspect]
     Dosage: 1000 MG, 1X/DAY:QD,

REACTIONS (5)
  - ILEAL PERFORATION [None]
  - NAUSEA [None]
  - PNEUMONIA [None]
  - VOMITING [None]
  - X-RAY ABNORMAL [None]
